FAERS Safety Report 7840032 (Version 2)
Quarter: 2013Q4

REPORT INFORMATION
  Report Type: Spontaneous
  Country: US (occurrence: US)
  Receive Date: 20110303
  Receipt Date: 20131120
  Transmission Date: 20140711
  Serious: Yes (Hospitalization)
  Sender: FDA-Public Use
  Company Number: US-BAYER-201029511NA

PATIENT
  Age: 35 Year
  Sex: Female
  Weight: 83.9 kg

DRUGS (11)
  1. YAZ [Suspect]
     Indication: ACNE
     Dosage: UNK
     Dates: start: 2008
  2. YAZ [Suspect]
     Indication: PREMENSTRUAL SYNDROME
  3. YASMIN [Suspect]
     Indication: ACNE
     Dosage: UNK
     Dates: start: 2008
  4. YASMIN [Suspect]
     Indication: PREMENSTRUAL SYNDROME
  5. VITAMIN C [Concomitant]
  6. TYLENOL NOS [Concomitant]
  7. MOTRIN [Concomitant]
  8. ADIPEX [Concomitant]
  9. ADDERALL [Concomitant]
  10. NEXIUM [Concomitant]
  11. DOXYCYCLINE HYCLATE [Concomitant]
     Dosage: 50 MG, LONG TERM USE

REACTIONS (6)
  - Cholecystitis [None]
  - Cholelithiasis [None]
  - Injury [None]
  - Nausea [None]
  - Vomiting [None]
  - Abdominal pain upper [None]
